FAERS Safety Report 23698048 (Version 1)
Quarter: 2024Q2

REPORT INFORMATION
  Report Type: Report from Study
  Country: NL (occurrence: NL)
  Receive Date: 20240402
  Receipt Date: 20240402
  Transmission Date: 20240716
  Serious: Yes (Hospitalization)
  Sender: FDA-Public Use
  Company Number: NL-AstraZeneca-2024A075806

PATIENT
  Age: 13 Month
  Sex: Female
  Weight: 7.6 kg

DRUGS (3)
  1. SYNAGIS [Suspect]
     Active Substance: PALIVIZUMAB
     Indication: Glycogen storage disease type IV
     Dosage: 15 MG/KG MONTHLY
     Route: 030
     Dates: start: 20240229
  2. ESOMEPRAZOLE [Concomitant]
     Active Substance: ESOMEPRAZOLE
     Indication: Product used for unknown indication
     Dosage: GRAN MSR
  3. BUDESONIDE VERNS [Concomitant]
     Indication: Product used for unknown indication
     Dosage: 0.125 MG/ML

REACTIONS (2)
  - Respiratory tract infection [Recovered/Resolved]
  - Illness [Recovered/Resolved]

NARRATIVE: CASE EVENT DATE: 20240301
